FAERS Safety Report 6517337-2 (Version None)
Quarter: 2009Q4

REPORT INFORMATION
  Report Type: 
  Country: None (occurrence: None)
  Receive Date: 20091223
  Receipt Date: 20091210
  Transmission Date: 20100525
  Serious: Yes (Other)
  Sender: FDA-Public Use
  Company Number: AT-PFIZER INC-2009303513

PATIENT
  Sex: Male
  Weight: 70 kg

DRUGS (2)
  1. ZELDOX [Suspect]
     Indication: DEPRESSED MOOD
     Dosage: 20 MG, 1X/DAY
     Route: 048
     Dates: start: 20090708, end: 20090908
  2. MUTAN [Concomitant]
     Indication: ANXIETY DISORDER
     Dosage: 40 MG, 1X/DAY
     Dates: start: 20090630, end: 20090827

REACTIONS (2)
  - ARRHYTHMIA [None]
  - TACHYCARDIA [None]
